FAERS Safety Report 8987588 (Version 1)
Quarter: 2012Q4

REPORT INFORMATION
  Report Type: 
  Country: GB (occurrence: GB)
  Receive Date: 20121227
  Receipt Date: 20121227
  Transmission Date: 20130627
  Serious: Yes (Life-Threatening, Hospitalization)
  Sender: FDA-Public Use
  Company Number: GB-PFIZER INC-2012327647

PATIENT
  Age: 78 Year
  Sex: Female

DRUGS (6)
  1. PREMIQUE [Suspect]
     Indication: ARTHRITIS
     Dosage: 1 DF, 1x/day
     Route: 048
     Dates: start: 20121105, end: 20121215
  2. PROMETHAZINE [Concomitant]
     Dosage: UNK
  3. SOLIFENACIN [Concomitant]
     Dosage: UNK
  4. LEVOTHYROXINE [Concomitant]
     Dosage: UNK
  5. PARACETAMOL [Concomitant]
     Dosage: UNK
  6. BETAHISTINE [Concomitant]
     Dosage: UNK

REACTIONS (5)
  - Myocardial infarction [Recovering/Resolving]
  - Chest pain [Unknown]
  - Palpitations [Unknown]
  - Acute coronary syndrome [Unknown]
  - Off label use [Unknown]
